FAERS Safety Report 4333318-1 (Version None)
Quarter: 2004Q1

REPORT INFORMATION
  Report Type: 
  Country: None (occurrence: None)
  Receive Date: 20040329
  Receipt Date: 20040112
  Transmission Date: 20041129
  Serious: No
  Sender: FDA-Public Use
  Company Number: 04P-163-0246843-00

PATIENT
  Age: 76 Year
  Sex: Female
  Weight: 51.7101 kg

DRUGS (8)
  1. HUMIRA [Suspect]
     Indication: RHEUMATOID ARTHRITIS
     Dosage: 40 MG, 1 IN 2 WK, SUBCUTANEOUS
     Route: 058
     Dates: start: 20030301
  2. METHOTREXATE [Concomitant]
  3. EXTRA STRENGTH TYLENOL [Concomitant]
  4. DARVOCET [Concomitant]
  5. TAMOXIFEN CITRATE [Concomitant]
  6. ZESTORETIC [Concomitant]
  7. ASPIRIN [Concomitant]
  8. LORAZEPAM [Concomitant]

REACTIONS (2)
  - CORNEAL OEDEMA [None]
  - URINARY TRACT INFECTION [None]
